FAERS Safety Report 25436146 (Version 1)
Quarter: 2025Q2

REPORT INFORMATION
  Report Type: Spontaneous
  Country: US (occurrence: US)
  Receive Date: 20250614
  Receipt Date: 20250614
  Transmission Date: 20250716
  Serious: Yes (Life-Threatening, Hospitalization, Other)
  Sender: AUROBINDO
  Company Number: US-MLMSERVICE-20250520-PI509375-00117-2

PATIENT
  Age: 17 Year
  Sex: Male

DRUGS (5)
  1. DEXAMETHASONE [Suspect]
     Active Substance: DEXAMETHASONE
     Indication: B precursor type acute leukaemia
     Route: 065
  2. SULFAMETHOXAZOLE\TRIMETHOPRIM [Suspect]
     Active Substance: SULFAMETHOXAZOLE\TRIMETHOPRIM
     Indication: Antifungal prophylaxis
     Route: 065
  3. MERCAPTOPURINE [Concomitant]
     Active Substance: MERCAPTOPURINE
     Indication: B precursor type acute leukaemia
     Route: 065
  4. VINCRISTINE [Concomitant]
     Active Substance: VINCRISTINE
     Indication: B precursor type acute leukaemia
     Route: 065
  5. PENTAMIDINE [Concomitant]
     Active Substance: PENTAMIDINE
     Indication: Antifungal prophylaxis
     Route: 042

REACTIONS (8)
  - Pneumonia toxoplasmal [Recovered/Resolved]
  - Rhinovirus infection [Recovered/Resolved]
  - Alanine aminotransferase increased [Unknown]
  - Aspartate aminotransferase increased [Unknown]
  - Blood albumin decreased [Unknown]
  - Blood sodium decreased [Unknown]
  - Lymphocyte count decreased [Unknown]
  - Vomiting psychogenic [Unknown]
